FAERS Safety Report 13552089 (Version 1)
Quarter: 2017Q2

REPORT INFORMATION
  Report Type: Spontaneous
  Country: GB (occurrence: GB)
  Receive Date: 20170516
  Receipt Date: 20170516
  Transmission Date: 20170830
  Serious: Yes (Hospitalization, Other)
  Sender: FDA-Public Use
  Company Number: GB-MYLANLABS-2017M1029203

PATIENT

DRUGS (1)
  1. LANSOPRAZOLE. [Suspect]
     Active Substance: LANSOPRAZOLE
     Dosage: 30 MILLIGRAM DAILY;
     Route: 048

REACTIONS (5)
  - Drug hypersensitivity [Unknown]
  - Drug intolerance [Unknown]
  - Malaise [Unknown]
  - Feeling abnormal [Unknown]
  - Wrong technique in product usage process [Unknown]
